FAERS Safety Report 4612182-7 (Version None)
Quarter: 2005Q2

REPORT INFORMATION
  Report Type: 
  Country: None (occurrence: None)
  Receive Date: 20050308
  Receipt Date: 20041123
  Transmission Date: 20051028
  Serious: Yes (Other)
  Sender: FDA-Public Use
  Company Number: 2004UW24122

PATIENT
  Age: 71 Year
  Sex: Female
  Weight: 61.234 kg

DRUGS (2)
  1. CRESTOR [Suspect]
     Indication: HYPERCHOLESTEROLAEMIA
     Dosage: 5 MG PO
     Route: 048
  2. ZIAC [Concomitant]

REACTIONS (1)
  - BONE PAIN [None]
